FAERS Safety Report 5759457-6 (Version None)
Quarter: 2008Q2

REPORT INFORMATION
  Report Type: 
  Country: None (occurrence: None)
  Receive Date: 20080605
  Receipt Date: 20071130
  Transmission Date: 20081010
  Serious: No
  Sender: FDA-Public Use
  Company Number: US-BAYER-200715969NA

PATIENT
  Age: 38 Year
  Sex: Female
  Weight: 48 kg

DRUGS (4)
  1. MIRENA [Suspect]
     Indication: CONTRACEPTION
     Route: 015
     Dates: start: 20071127
  2. LAMICTAL [Concomitant]
     Route: 048
  3. WELLBUTRIN [Concomitant]
     Route: 048
  4. ORTHO-NOVUM [Concomitant]
     Dates: start: 19890101, end: 20020101

REACTIONS (3)
  - DYSPAREUNIA [None]
  - POST PROCEDURAL OEDEMA [None]
  - VAGINAL ODOUR [None]
